FAERS Safety Report 10544855 (Version 1)
Quarter: 2014Q4

REPORT INFORMATION
  Report Type: Report from Study
  Country: AR (occurrence: AR)
  Receive Date: 20141027
  Receipt Date: 20141027
  Transmission Date: 20150529
  Serious: Yes (Death, Hospitalization, Disabling, Other)
  Sender: FDA-Public Use
  Company Number: PHHY2014AR139855

PATIENT
  Sex: Male

DRUGS (1)
  1. DIOVAN [Suspect]
     Active Substance: VALSARTAN
     Indication: HYPERTENSION
     Dosage: 160 MG, UNK
     Route: 048
     Dates: start: 2011

REACTIONS (9)
  - Bronchitis [Unknown]
  - Blindness unilateral [Unknown]
  - Coma [Unknown]
  - Blindness [Unknown]
  - Abasia [Unknown]
  - Cerebrovascular accident [Unknown]
  - Maculopathy [Unknown]
  - Pneumonia [Fatal]
  - Vision blurred [Unknown]

NARRATIVE: CASE EVENT DATE: 2014
